FAERS Safety Report 5679192-2 (Version None)
Quarter: 2008Q1

REPORT INFORMATION
  Report Type: 
  Country: None (occurrence: None)
  Receive Date: 20080321
  Receipt Date: 20080307
  Transmission Date: 20080703
  Serious: Yes (Other)
  Sender: FDA-Public Use
  Company Number: 2008AL001557

PATIENT
  Age: 72 Year
  Sex: Female

DRUGS (2)
  1. SERTRALINE HYDROCHLORIDE  (BASE) (AELLC) [Suspect]
     Indication: DEPRESSION
     Dosage: 50 MG;QD;PO
     Route: 048
     Dates: start: 20070712, end: 20080201
  2. ATENOLOL [Concomitant]

REACTIONS (4)
  - ABDOMINAL PAIN UPPER [None]
  - ANAL FISSURE [None]
  - DIARRHOEA [None]
  - RECTAL HAEMORRHAGE [None]
